FAERS Safety Report 8566953 (Version 3)
Quarter: 2012Q4

REPORT INFORMATION
  Report Type: 
  Country: US (occurrence: US)
  Receive Date: 20120517
  Receipt Date: 20121030
  Transmission Date: 20130627
  Serious: No
  Sender: FDA-Public Use
  Company Number: US-ASTRAZENECA-2012SE30316

PATIENT
  Age: 76 Year
  Sex: Female

DRUGS (1)
  1. ARIMIDEX [Suspect]
     Route: 048
     Dates: start: 201205

REACTIONS (6)
  - Limb discomfort [Unknown]
  - Fall [Unknown]
  - Condition aggravated [Unknown]
  - Skin wrinkling [Unknown]
  - Bone pain [Unknown]
  - Musculoskeletal pain [Unknown]
